FAERS Safety Report 9369612 (Version 1)
Quarter: 2013Q2

REPORT INFORMATION
  Report Type: Spontaneous
  Country: US (occurrence: US)
  Receive Date: 20130626
  Receipt Date: 20130626
  Transmission Date: 20140414
  Serious: No
  Sender: FDA-Public Use
  Company Number: US-MYLANLABS-2013S1006548

PATIENT
  Age: 71 Year
  Sex: Female
  Weight: 88.45 kg

DRUGS (3)
  1. PERFOROMIST (FORMOTEROL FUMARATE) INHALATION SOLUTION [Suspect]
     Indication: CHRONIC OBSTRUCTIVE PULMONARY DISEASE
     Route: 055
     Dates: start: 2012
  2. THYROID SUPPLEMENT [Concomitant]
     Dosage: MANY YEARS
  3. SPIRIVA [Concomitant]
     Dosage: MANY YEARS

REACTIONS (1)
  - Blood pressure increased [Not Recovered/Not Resolved]
